FAERS Safety Report 9551086 (Version 1)
Quarter: 2013Q3

REPORT INFORMATION
  Report Type: Report from Study
  Country: US (occurrence: US)
  Receive Date: 20130925
  Receipt Date: 20130925
  Transmission Date: 20140515
  Serious: Yes (Other)
  Sender: FDA-Public Use
  Company Number: US-ROCHE-1278755

PATIENT
  Sex: 0

DRUGS (9)
  1. BEVACIZUMAB [Suspect]
     Indication: COLORECTAL CANCER
     Dosage: AT DOSE LEVEL -2, -1, 0, 1, 2, 3
     Route: 042
  2. IMATINIB [Suspect]
     Indication: COLORECTAL CANCER
     Dosage: AT DOSE LEVEL 0
     Route: 048
  3. IMATINIB [Suspect]
     Dosage: AT DOSE LEVEL 1
     Route: 048
  4. IMATINIB [Suspect]
     Dosage: AT DOSE LEVEL 2
     Route: 048
  5. IMATINIB [Suspect]
     Dosage: AT DOSE LEVEL 3
     Route: 048
  6. CYCLOPHOSPHAMIDE [Suspect]
     Indication: COLORECTAL CANCER
     Dosage: AT DOSE LEVEL 0
     Route: 048
  7. CYCLOPHOSPHAMIDE [Suspect]
     Dosage: AT DOSE LEVEL 1
     Route: 048
  8. CYCLOPHOSPHAMIDE [Suspect]
     Dosage: AT DOSE LEVEL 2
     Route: 048
  9. CYCLOPHOSPHAMIDE [Suspect]
     Dosage: AT DOSE LEVEL 3
     Route: 048

REACTIONS (10)
  - Neutropenia [Unknown]
  - Hypertension [Unknown]
  - Fatigue [Unknown]
  - Erythema multiforme [Unknown]
  - Hyperbilirubinaemia [Unknown]
  - Blood alkaline phosphatase increased [Unknown]
  - Hyponatraemia [Unknown]
  - Haematuria [Unknown]
  - Abdominal pain [Unknown]
  - Thrombosis [Unknown]
